FAERS Safety Report 20017732 (Version 1)
Quarter: 2021Q4

REPORT INFORMATION
  Report Type: Spontaneous
  Country: US (occurrence: None)
  Receive Date: 20211031
  Receipt Date: 20211031
  Transmission Date: 20220303
  Serious: Yes (Death)
  Sender: FDA-Public Use
  Company Number: US-ROCHE-2947597

PATIENT
  Age: 91 Year
  Sex: Male

DRUGS (1)
  1. ESBRIET [Suspect]
     Active Substance: PIRFENIDONE
     Indication: Idiopathic pulmonary fibrosis
     Dosage: THREE TIMES DAILY
     Route: 048
     Dates: start: 20161208, end: 20211023

REACTIONS (1)
  - Death [Fatal]

NARRATIVE: CASE EVENT DATE: 20211023
